FAERS Safety Report 21978344 (Version 2)
Quarter: 2023Q1

REPORT INFORMATION
  Report Type: Report from Study
  Country: US (occurrence: US)
  Receive Date: 20230210
  Receipt Date: 20230228
  Transmission Date: 20230417
  Serious: Yes (Hospitalization, Other)
  Sender: FDA-Public Use
  Company Number: US-TAKEDA-2023TUS014683

PATIENT
  Age: 3 Year
  Sex: Male

DRUGS (8)
  1. TEDUGLUTIDE [Suspect]
     Active Substance: TEDUGLUTIDE
     Indication: Short-bowel syndrome
     Dosage: 0.600 MILLIGRAM, QD
     Route: 042
     Dates: start: 20200914, end: 20210303
  2. TEDUGLUTIDE [Suspect]
     Active Substance: TEDUGLUTIDE
     Indication: Short-bowel syndrome
     Dosage: 0.600 MILLIGRAM, QD
     Route: 042
     Dates: start: 20200914, end: 20210303
  3. TEDUGLUTIDE [Suspect]
     Active Substance: TEDUGLUTIDE
     Indication: Short-bowel syndrome
     Dosage: 0.600 MILLIGRAM, QD
     Route: 042
     Dates: start: 20200914, end: 20210303
  4. TEDUGLUTIDE [Suspect]
     Active Substance: TEDUGLUTIDE
     Indication: Short-bowel syndrome
     Dosage: 0.600 MILLIGRAM, QD
     Route: 042
     Dates: start: 20200914, end: 20210303
  5. CEFTRIAXONE [Concomitant]
     Active Substance: CEFTRIAXONE
     Indication: Device related sepsis
     Dosage: 640 MILLIGRAM, QD
     Route: 042
     Dates: start: 20210713, end: 20210723
  6. FERROUS SULFATE [Concomitant]
     Active Substance: FERROUS SULFATE
     Indication: Anaemia
     Dosage: 36.0 MILLIGRAM, BID
     Route: 050
     Dates: start: 20210203
  7. REGLAN [Concomitant]
     Active Substance: METOCLOPRAMIDE HYDROCHLORIDE
     Indication: Gastrointestinal motility disorder
     Dosage: 1.70 MILLIGRAM, BID
     Route: 048
     Dates: start: 20210330
  8. LOPERAMIDE [Concomitant]
     Active Substance: LOPERAMIDE
     Indication: Gastrointestinal motility disorder
     Dosage: 2 MILLIGRAM, TID
     Route: 050
     Dates: start: 20211104

REACTIONS (1)
  - Bacteraemia [Recovered/Resolved]

NARRATIVE: CASE EVENT DATE: 20220508
